FAERS Safety Report 7828328-3 (Version None)
Quarter: 2011Q4

REPORT INFORMATION
  Report Type: 
  Country: None (occurrence: None)
  Receive Date: 20111020
  Receipt Date: 20111011
  Transmission Date: 20120403
  Serious: Yes (Death, Other)
  Sender: FDA-Public Use
  Company Number: JP-MPIJNJ-2010-02255

PATIENT

DRUGS (3)
  1. DOXORUBICIN HYDROCHLORIDE [Concomitant]
     Indication: MULTIPLE MYELOMA
  2. DEXAMETHASONE [Concomitant]
     Indication: MULTIPLE MYELOMA
  3. VELCADE [Suspect]
     Indication: MULTIPLE MYELOMA
     Dosage: 1.0 MG/M2, UNK
     Route: 042
     Dates: start: 20100315, end: 20100325

REACTIONS (2)
  - SEPSIS [None]
  - PNEUMONIA ASPIRATION [None]
